FAERS Safety Report 5052768-1 (Version None)
Quarter: 2006Q3

REPORT INFORMATION
  Report Type: 
  Country: None (occurrence: None)
  Receive Date: 20060717
  Receipt Date: 20060707
  Transmission Date: 20061208
  Serious: Yes (Hospitalization)
  Sender: FDA-Public Use
  Company Number: IT-ROCHE-454325

PATIENT
  Age: 88 Year
  Sex: Female

DRUGS (7)
  1. KETOROLAC TROMETHAMINE [Suspect]
     Dosage: AS NEEDED
     Route: 030
     Dates: start: 20060601, end: 20060614
  2. FRAXIPARINA [Suspect]
     Indication: THROMBOSIS PROPHYLAXIS
     Route: 058
     Dates: start: 20060601, end: 20060614
  3. NEXIUM [Concomitant]
     Route: 048
  4. NAPRILENE [Concomitant]
     Route: 048
  5. LASIX [Concomitant]
     Route: 048
  6. SIVASTIN [Concomitant]
  7. UROTRACTIN [Concomitant]

REACTIONS (3)
  - ANAEMIA [None]
  - GASTRIC ULCER [None]
  - HAEMATEMESIS [None]
